FAERS Safety Report 16578005 (Version 2)
Quarter: 2020Q2

REPORT INFORMATION
  Report Type: Spontaneous
  Country: IT (occurrence: IT)
  Receive Date: 20190716
  Receipt Date: 20200625
  Transmission Date: 20200713
  Serious: Yes (Hospitalization)
  Sender: FDA-Public Use
  Company Number: PHHY2019IT161176

PATIENT
  Age: 97 Year
  Sex: Male

DRUGS (3)
  1. NOZINAN [Suspect]
     Active Substance: LEVOMEPROMAZINE
     Indication: PRODUCT ADMINISTRATION ERROR
     Dosage: 100 MG (TOTAL)
     Route: 048
     Dates: start: 20190624, end: 20190624
  2. OLANZAPINE. [Suspect]
     Active Substance: OLANZAPINE
     Indication: PRODUCT ADMINISTRATION ERROR
     Dosage: 2.5 MG, (TOTAL)
     Route: 048
     Dates: start: 20190624, end: 20190624
  3. ENTUMIN [Suspect]
     Active Substance: CLOTHIAPINE
     Indication: PRODUCT ADMINISTRATION ERROR
     Dosage: 40 MG, TOTAL
     Route: 048
     Dates: start: 20190624, end: 20190624

REACTIONS (2)
  - Depressed level of consciousness [Recovering/Resolving]
  - Medication error [Recovering/Resolving]

NARRATIVE: CASE EVENT DATE: 20190624
